FAERS Safety Report 6517899-5 (Version None)
Quarter: 2009Q4

REPORT INFORMATION
  Report Type: 
  Country: None (occurrence: None)
  Receive Date: 20091224
  Receipt Date: 20091223
  Transmission Date: 20100525
  Serious: Yes (Life-Threatening)
  Sender: FDA-Public Use
  Company Number: US-ROXANE LABORATORIES, INC.-2009-RO-01289RO

PATIENT
  Age: 49 Year
  Sex: Male

DRUGS (18)
  1. PREDNISONE TAB [Suspect]
     Dosage: 5 MG
     Dates: start: 20090423
  2. MYCOPHENOLATE MOFETIL [Suspect]
     Dosage: 1000 MG
     Dates: start: 20080505
  3. BELATACEPT [Suspect]
     Indication: RENAL TRANSPLANT
     Route: 042
     Dates: start: 20070104, end: 20091203
  4. VALIUM [Concomitant]
     Dates: start: 20070104
  5. AMOXICILLIN [Concomitant]
     Dates: start: 20070104
  6. DOXYCYCLINE [Concomitant]
     Dates: start: 20090910
  7. ZOLPIDEM [Concomitant]
     Dates: start: 20090721
  8. LASIX [Concomitant]
     Dates: start: 20081201
  9. CIALIS [Concomitant]
     Dates: start: 20080814
  10. AMBIEN [Concomitant]
     Dates: start: 20080814
  11. PEPCID [Concomitant]
     Dates: start: 20091105
  12. MAGNEISUM OXIDE [Concomitant]
     Dates: start: 20070105
  13. VASOTEC [Concomitant]
     Dates: start: 20070524
  14. M.V.I. [Concomitant]
     Dates: start: 20070208
  15. ZOCOR [Concomitant]
     Dates: start: 20091026
  16. PROTONIX [Concomitant]
     Dates: start: 20070109
  17. ANDROGEL [Concomitant]
     Dates: start: 20070719
  18. HYDROCHLOROTHIAZIDE [Concomitant]
     Dates: start: 20070621

REACTIONS (4)
  - HIATUS HERNIA [None]
  - LIVER DISORDER [None]
  - LYMPHADENOPATHY [None]
  - SQUAMOUS CELL CARCINOMA [None]
